FAERS Safety Report 4866381-X (Version None)
Quarter: 2005Q4

REPORT INFORMATION
  Report Type: 
  Country: None (occurrence: None)
  Receive Date: 20051227
  Receipt Date: 20050413
  Transmission Date: 20060501
  Serious: Yes (Hospitalization, Disabling, Other)
  Sender: FDA-Public Use
  Company Number: US-MERCK-0504USA02172

PATIENT
  Age: 30 Year
  Sex: Female
  Weight: 70 kg

DRUGS (8)
  1. VIOXX [Suspect]
     Indication: RHEUMATOID ARTHRITIS
     Route: 048
     Dates: start: 20001111, end: 20010220
  2. VIOXX [Suspect]
     Route: 048
     Dates: start: 20010210
  3. VIOXX [Suspect]
     Route: 048
     Dates: start: 20030421, end: 20040305
  4. IBUPROFEN [Concomitant]
     Indication: PAIN
     Route: 065
  5. HORMONAL CONTRACEPTIVES (UNSPECIFIED) [Concomitant]
     Route: 065
  6. PREDNISONE [Concomitant]
     Route: 065
  7. METHOTREXATE [Concomitant]
     Route: 065
  8. [COMPOSITION UNSPECIFIED] [Concomitant]
     Route: 065

REACTIONS (4)
  - ARTHROPATHY [None]
  - ASTHMA [None]
  - DEEP VEIN THROMBOSIS [None]
  - PULMONARY EMBOLISM [None]
